FAERS Safety Report 7816967-5 (Version None)
Quarter: 2011Q4

REPORT INFORMATION
  Report Type: 
  Country: None (occurrence: None)
  Receive Date: 20111017
  Receipt Date: 20111003
  Transmission Date: 20120403
  Serious: Yes (Other)
  Sender: FDA-Public Use
  Company Number: US-BAYER-201034611NA

PATIENT
  Age: 23 Year
  Sex: Female
  Weight: 95.238 kg

DRUGS (4)
  1. DIETARY SUPPLEMENT [Concomitant]
  2. IBUPROFEN [Concomitant]
  3. ESTROSTEP [Concomitant]
  4. YAZ [Suspect]
     Indication: PRODUCT USED FOR UNKNOWN INDICATION
     Route: 048
     Dates: start: 20050401, end: 20060601

REACTIONS (2)
  - CHOLELITHIASIS [None]
  - GALLBLADDER DISORDER [None]
